FAERS Safety Report 16551273 (Version 1)
Quarter: 2019Q3

REPORT INFORMATION
  Report Type: Spontaneous
  Country: US (occurrence: US)
  Receive Date: 20190529
  Receipt Date: 20190529
  Transmission Date: 20191004
  Serious: Yes (Death)
  Sender: FDA-Public Use
  Company Number: None

PATIENT
  Age: 54 Year
  Sex: Male

DRUGS (3)
  1. CAPECITABINE 500MG TAB [Suspect]
     Active Substance: CAPECITABINE
     Indication: DRUG THERAPY
     Dosage: 3 TS Q 12  H PO?
     Route: 048
     Dates: start: 20181106
  2. FENTANYL DIS [Concomitant]
  3. VITAMIN B-6 [Concomitant]
     Active Substance: PYRIDOXINE

REACTIONS (1)
  - Death [None]

NARRATIVE: CASE EVENT DATE: 20190324
